FAERS Safety Report 12448998 (Version 1)
Quarter: 2016Q2

REPORT INFORMATION
  Report Type: Spontaneous
  Country: US (occurrence: US)
  Receive Date: 20160608
  Receipt Date: 20160608
  Transmission Date: 20160815
  Serious: Yes (Disabling)
  Sender: FDA-Public Use
  Company Number: US-MYLANLABS-2016M1022710

PATIENT

DRUGS (2)
  1. FENTANYL. [Suspect]
     Active Substance: FENTANYL
     Indication: PAIN
     Dosage: UNK, CHANGE Q72H
     Route: 062
  2. FENTANYL. [Suspect]
     Active Substance: FENTANYL
     Dosage: UNK, CHANGE Q48H
     Route: 062

REACTIONS (1)
  - Drug effect decreased [Recovered/Resolved]
